FAERS Safety Report 7485309-X (Version None)
Quarter: 2011Q2

REPORT INFORMATION
  Report Type: 
  Country: None (occurrence: None)
  Receive Date: 20110517
  Receipt Date: 20100505
  Transmission Date: 20111010
  Serious: No
  Sender: FDA-Public Use
  Company Number: US-NOVEN-ALL1-2010-02677

PATIENT

DRUGS (1)
  1. DAYTRANA [Suspect]
     Dosage: UNK MG, 1X/DAY:QD (ONE AND 1/2 OF THE 20 MG. PATCHES)
     Route: 062
     Dates: start: 20100401, end: 20100401

REACTIONS (4)
  - DISTURBANCE IN ATTENTION [None]
  - APPLICATION SITE PRURITUS [None]
  - WRONG TECHNIQUE IN DRUG USAGE PROCESS [None]
  - DRUG INEFFECTIVE [None]
